FAERS Safety Report 19162130 (Version 1)
Quarter: 2021Q2

REPORT INFORMATION
  Report Type: Report from Study
  Country: CO (occurrence: CO)
  Receive Date: 20210421
  Receipt Date: 20210421
  Transmission Date: 20210717
  Serious: Yes (Hospitalization, Other)
  Sender: FDA-Public Use
  Company Number: CO-AMGEN-COLSL2021058804

PATIENT
  Age: 62 Year
  Sex: Male

DRUGS (1)
  1. VECTIBIX [Suspect]
     Active Substance: PANITUMUMAB
     Indication: COLORECTAL CANCER METASTATIC
     Dosage: 575 MILLIGRAM, Q2WK
     Route: 065
     Dates: start: 20201105

REACTIONS (3)
  - Liver abscess [Not Recovered/Not Resolved]
  - Pulmonary oedema [Not Recovered/Not Resolved]
  - Surgery [Recovered/Resolved]

NARRATIVE: CASE EVENT DATE: 20210328
